FAERS Safety Report 8690813 (Version 3)
Quarter: 2013Q2

REPORT INFORMATION
  Report Type: Spontaneous
  Country: US (occurrence: US)
  Receive Date: 20120728
  Receipt Date: 20130621
  Transmission Date: 20140414
  Serious: Yes (Hospitalization, Other)
  Sender: FDA-Public Use
  Company Number: US-009507513-1207USA007318

PATIENT
  Sex: Female
  Weight: 63.95 kg

DRUGS (3)
  1. FOSAMAX [Suspect]
     Indication: BONE DISORDER
     Dosage: 10 MG, UNK
     Route: 048
     Dates: start: 200010, end: 201008
  2. FOSAMAX [Suspect]
     Dosage: 70 MG, UNK
     Route: 048
     Dates: start: 200010, end: 201008
  3. ALENDRONATE SODIUM [Suspect]

REACTIONS (30)
  - Femur fracture [Unknown]
  - Femur fracture [Unknown]
  - Intramedullary rod insertion [Unknown]
  - Biopsy bone [Unknown]
  - Intramedullary rod insertion [Unknown]
  - Humerus fracture [Unknown]
  - Breast cancer stage III [Not Recovered/Not Resolved]
  - Intraductal proliferative breast lesion [Unknown]
  - Chest pain [Unknown]
  - Breast lump removal [Unknown]
  - Breast lump removal [Unknown]
  - Lymphadenectomy [Unknown]
  - Hysterectomy [Unknown]
  - Procedural vomiting [Recovered/Resolved]
  - Procedural nausea [Recovered/Resolved]
  - Fibrocystic breast disease [Unknown]
  - Salpingo-oophorectomy bilateral [Unknown]
  - Stomatitis [Unknown]
  - Blood cholesterol increased [Not Recovered/Not Resolved]
  - Hypertension [Not Recovered/Not Resolved]
  - Foot fracture [Unknown]
  - Ankle fracture [Unknown]
  - Osteopenia [Unknown]
  - Osteoporosis [Not Recovered/Not Resolved]
  - Dysuria [Unknown]
  - Urinary tract infection [Unknown]
  - Major depression [Unknown]
  - Panic disorder [Unknown]
  - Blood calcium decreased [Unknown]
  - Back pain [Unknown]
